FAERS Safety Report 10257515 (Version 1)
Quarter: 2014Q2

REPORT INFORMATION
  Report Type: Spontaneous
  Country: US (occurrence: US)
  Receive Date: 20140625
  Receipt Date: 20140625
  Transmission Date: 20141212
  Serious: No
  Sender: FDA-Public Use
  Company Number: US-GLAXOSMITHKLINE-A1057864A

PATIENT
  Age: 48 Year
  Sex: Female

DRUGS (2)
  1. VERAMYST [Suspect]
     Indication: RHINITIS ALLERGIC
     Dosage: 1SPR AS REQUIRED
     Route: 045
     Dates: start: 2008, end: 201308
  2. NO CONCURRENT MEDICATION [Concomitant]

REACTIONS (1)
  - Cataract [Not Recovered/Not Resolved]
